FAERS Safety Report 14323989 (Version 1)
Quarter: 2017Q4

REPORT INFORMATION
  Report Type: Spontaneous
  Country: FR (occurrence: FR)
  Receive Date: 20171226
  Receipt Date: 20171226
  Transmission Date: 20180321
  Serious: Yes (Other)
  Sender: FDA-Public Use
  Company Number: FR-VIIV HEALTHCARE LIMITED-FR2017196133

PATIENT
  Age: 53 Year
  Sex: Female

DRUGS (6)
  1. INTELENCE [Suspect]
     Active Substance: ETRAVIRINE
     Indication: HIV INFECTION WHO CLINICAL STAGE I
     Dosage: 400 MG, QD
     Route: 065
     Dates: start: 20140102
  2. EPIVIR [Suspect]
     Active Substance: LAMIVUDINE
     Indication: HIV INFECTION WHO CLINICAL STAGE I
     Dosage: 300 MG, QD
     Route: 048
     Dates: start: 20050930, end: 20120530
  3. TELZIR [Suspect]
     Active Substance: FOSAMPRENAVIR CALCIUM
     Indication: HIV INFECTION WHO CLINICAL STAGE I
     Dosage: 1400 KIU, QD
     Route: 048
     Dates: start: 20041103, end: 20100607
  4. VIREAD [Suspect]
     Active Substance: TENOFOVIR DISOPROXIL FUMARATE
     Indication: HIV INFECTION WHO CLINICAL STAGE I
     Dosage: 245 MG, QD
     Route: 048
     Dates: start: 20041103, end: 20120530
  5. TRUVADA [Suspect]
     Active Substance: EMTRICITABINE\TENOFOVIR DISOPROXIL FUMARATE
     Indication: HIV INFECTION WHO CLINICAL STAGE I
     Dosage: 1 DF, QD
     Route: 048
     Dates: start: 20120530
  6. NORVIR [Suspect]
     Active Substance: RITONAVIR
     Indication: HIV INFECTION WHO CLINICAL STAGE I
     Dosage: 100 MG, QD
     Route: 048
     Dates: start: 20041103, end: 20140102

REACTIONS (2)
  - Lipoatrophy [Not Recovered/Not Resolved]
  - Lipodystrophy acquired [Not Recovered/Not Resolved]
